FAERS Safety Report 10559393 (Version 1)
Quarter: 2014Q4

REPORT INFORMATION
  Report Type: Spontaneous
  Country: ES (occurrence: ES)
  Receive Date: 20141103
  Receipt Date: 20141103
  Transmission Date: 20150529
  Serious: Yes (Other)
  Sender: FDA-Public Use
  Company Number: ES-009507513-1410ESP015431

PATIENT
  Age: 46 Year
  Sex: Female

DRUGS (2)
  1. INTRON A [Suspect]
     Active Substance: INTERFERON ALFA-2B
     Indication: NODULAR MELANOMA
     Dosage: 15 MILLION IU, TID
     Route: 058
     Dates: start: 20140808, end: 20140901
  2. INTRON A [Suspect]
     Active Substance: INTERFERON ALFA-2B
     Dosage: 10 MILLION IU, TID
     Route: 058
     Dates: start: 20140901

REACTIONS (3)
  - Ear infection [Recovered/Resolved]
  - Neutropenia [Recovered/Resolved]
  - Hypoacusis [Not Recovered/Not Resolved]

NARRATIVE: CASE EVENT DATE: 20140814
